FAERS Safety Report 5387519-4 (Version None)
Quarter: 2007Q3

REPORT INFORMATION
  Report Type: 
  Country: None (occurrence: None)
  Receive Date: 20070711
  Receipt Date: 20070711
  Transmission Date: 20080115
  Serious: Yes (Hospitalization)
  Sender: FDA-Public Use
  Company Number: None

PATIENT
  Age: 63 Year
  Sex: Male
  Weight: 82.3 kg

DRUGS (5)
  1. VANCOMYCIN [Suspect]
     Indication: FEBRILE NEUTROPENIA
     Dosage: 2G, 1G Q12H, INTRAVEN
     Route: 042
     Dates: start: 20070322, end: 20070420
  2. CEFEPIME [Suspect]
     Indication: FEBRILE NEUTROPENIA
     Dosage: 4G, 2G Q12H, INTRAVENOUS
     Route: 042
     Dates: start: 20070322, end: 20070412
  3. LEVOFLOXACIN [Concomitant]
  4. METRONIDAZOLE [Concomitant]
  5. FLUCONAZOLE [Concomitant]

REACTIONS (1)
  - RASH [None]
